FAERS Safety Report 15080089 (Version 2)
Quarter: 2018Q3

REPORT INFORMATION
  Report Type: Report from Study
  Country: MX (occurrence: MX)
  Receive Date: 20180627
  Receipt Date: 20180709
  Transmission Date: 20181010
  Serious: Yes (Other)
  Sender: FDA-Public Use
  Company Number: PHHY2018MX030411

PATIENT
  Sex: Male

DRUGS (2)
  1. EXFORGE HCT [Suspect]
     Active Substance: AMLODIPINE BESYLATE\HYDROCHLOROTHIAZIDE\VALSARTAN
     Indication: HYPERTENSION
     Dosage: 0.5 DF, (AMLODIPINE 10MG ,HYDROCHLOROTHIAZIDE 25MG, VALSARTAN 320MG) QD (7 YEARS)
     Route: 048
  2. EXFORGE HCT [Suspect]
     Active Substance: AMLODIPINE BESYLATE\HYDROCHLOROTHIAZIDE\VALSARTAN
     Dosage: 2 DF, QD (AMLODIPINE 10 MG ,HYDROCHLOROTHIAZIDE 25 MG, VALSARTAN 320 MG)
     Route: 048

REACTIONS (3)
  - Wrong technique in product usage process [Unknown]
  - Blindness [Unknown]
  - Prescribed overdose [Unknown]
